FAERS Safety Report 9247884 (Version 3)
Quarter: 2014Q1

REPORT INFORMATION
  Report Type: Spontaneous
  Country: US (occurrence: US)
  Receive Date: 20130423
  Receipt Date: 20140328
  Transmission Date: 20141002
  Serious: No
  Sender: FDA-Public Use
  Company Number: US-ASTRAZENECA-2013SE27291

PATIENT
  Age: 45 Year
  Sex: Female

DRUGS (12)
  1. NEXIUM [Suspect]
     Indication: GASTROOESOPHAGEAL REFLUX DISEASE
     Dosage: ONCE A DAY
     Route: 048
     Dates: start: 2001
  2. NEXIUM [Suspect]
     Indication: ABDOMINAL DISCOMFORT
     Dosage: ONCE A DAY
     Route: 048
     Dates: start: 2001
  3. NEXIUM [Suspect]
     Indication: GASTROOESOPHAGEAL REFLUX DISEASE
     Route: 048
     Dates: start: 20021219
  4. NEXIUM [Suspect]
     Indication: ABDOMINAL DISCOMFORT
     Route: 048
     Dates: start: 20021219
  5. VISTRIL [Concomitant]
     Indication: PAIN
     Route: 048
  6. VISTRIL [Concomitant]
     Indication: NERVOUSNESS
     Route: 048
  7. MYLANTA OTC [Concomitant]
     Indication: PAIN
     Dates: start: 20100730
  8. PRAVACHOL [Concomitant]
     Dosage: EVERY BEDTIME
  9. ULTRAM [Concomitant]
  10. VITAMIN B 12 [Concomitant]
  11. PREDNISONE [Concomitant]
     Dates: start: 20121126
  12. MOBIC [Concomitant]
     Dates: start: 20121126

REACTIONS (8)
  - Bone disorder [Unknown]
  - Osteoporosis [Unknown]
  - Lumbar vertebral fracture [Unknown]
  - Fractured coccyx [Unknown]
  - Arthropathy [Unknown]
  - Osteoarthritis [Unknown]
  - Polyarthritis [Unknown]
  - Intervertebral disc degeneration [Unknown]
